FAERS Safety Report 5056920-0 (Version None)
Quarter: 2006Q2

REPORT INFORMATION
  Report Type: 
  Country: None (occurrence: None)
  Receive Date: 20060622
  Receipt Date: 20051006
  Transmission Date: 20061013
  Serious: Yes (Death)
  Sender: FDA-Public Use
  Company Number: US-JNJFOC-20051001919

PATIENT
  Age: 36 Year
  Sex: Female

DRUGS (2)
  1. DURAGESIC-100 [Suspect]
     Indication: INTENTIONAL DRUG MISUSE
     Dosage: 100 UG/HR, TRANSDERMAL
     Route: 062
     Dates: end: 20050928
  2. DURAGESIC-100 [Suspect]

REACTIONS (1)
  - OVERDOSE [None]
